FAERS Safety Report 9725229 (Version 1)
Quarter: 2013Q4

REPORT INFORMATION
  Report Type: Spontaneous
  Country: US (occurrence: None)
  Receive Date: 20131202
  Receipt Date: 20131202
  Transmission Date: 20140711
  Serious: Yes (Other)
  Sender: FDA-Public Use
  Company Number: None

PATIENT
  Age: 28 Year
  Sex: Female
  Weight: 63.5 kg

DRUGS (1)
  1. DITROPAN [Suspect]
     Dosage: 1 PILL ONCE DAILY TAKEN BY MOUTH

REACTIONS (1)
  - Basal cell carcinoma [None]
